FAERS Safety Report 7751284-3 (Version None)
Quarter: 2011Q3

REPORT INFORMATION
  Report Type: 
  Country: None (occurrence: None)
  Receive Date: 20110914
  Receipt Date: 20110906
  Transmission Date: 20111222
  Serious: Yes (Hospitalization)
  Sender: FDA-Public Use
  Company Number: US-GILEAD-2011-0043739

PATIENT
  Sex: Male
  Weight: 67.3 kg

DRUGS (12)
  1. CAYSTON [Suspect]
     Indication: CYSTIC FIBROSIS
     Route: 055
     Dates: start: 20110902
  2. CREON [Concomitant]
     Indication: PANCREATIC INSUFFICIENCY
     Route: 055
     Dates: start: 20100503
  3. VEST THERAPY [Concomitant]
     Indication: CYSTIC FIBROSIS LUNG
     Route: 055
     Dates: start: 19970101
  4. AZITHROMYCIN [Concomitant]
     Route: 055
  5. TOBRAMYCIN [Concomitant]
  6. PULMOZYME [Concomitant]
     Indication: CYSTIC FIBROSIS LUNG
     Route: 055
     Dates: start: 20040101
  7. AQUADEKS [Concomitant]
     Indication: MEDICAL DIET
     Route: 055
     Dates: start: 20040101
  8. ALBUTEROL [Concomitant]
     Indication: CYSTIC FIBROSIS LUNG
     Route: 055
     Dates: start: 20070101
  9. VITAMIN D [Concomitant]
     Indication: MEDICAL DIET
     Route: 055
     Dates: start: 20100727
  10. NEXIUM [Concomitant]
     Indication: PANCREATIC INSUFFICIENCY
     Route: 055
     Dates: start: 20100720
  11. ADVAIR DISKUS 100/50 [Concomitant]
     Indication: CYSTIC FIBROSIS LUNG
     Route: 055
     Dates: start: 20100503
  12. CIPROFLOXACIN [Concomitant]

REACTIONS (1)
  - LUNG DISORDER [None]
